FAERS Safety Report 9788248 (Version 2)
Quarter: 2014Q1

REPORT INFORMATION
  Report Type: Report from Study
  Country: JP (occurrence: JP)
  Receive Date: 20131230
  Receipt Date: 20140114
  Transmission Date: 20141002
  Serious: Yes (Death, Hospitalization)
  Sender: FDA-Public Use
  Company Number: JP-PFIZER INC-2013365579

PATIENT
  Age: 64 Year
  Sex: Female

DRUGS (16)
  1. REVATIO [Suspect]
     Indication: PULMONARY HYPERTENSION
     Dosage: UNK
     Route: 048
     Dates: start: 20100617, end: 20120920
  2. REVATIO [Suspect]
     Dosage: 10 MG, 2X/DAY
     Route: 048
     Dates: start: 20120921
  3. MEDROL [Concomitant]
     Route: 048
  4. MUCOTRON [Concomitant]
     Route: 048
  5. KLARICID [Concomitant]
     Dosage: UNK
     Route: 048
     Dates: end: 20120906
  6. TEPRENONE [Concomitant]
     Dosage: UNK
     Route: 048
  7. BENIDIPINE HYDROCHLORIDE [Concomitant]
     Dosage: UNK
     Route: 048
  8. LANSOPRAZOLE [Concomitant]
     Dosage: UNK
     Route: 048
  9. EUGLUCON [Concomitant]
     Dosage: UNK
     Route: 048
  10. ETODOLAC [Concomitant]
     Dosage: UNK
     Route: 048
  11. SEREVENT DISKUS [Concomitant]
     Dosage: UNK
     Route: 055
  12. TEARBALANCE [Concomitant]
     Dosage: UNK
     Route: 047
  13. NESINA [Concomitant]
     Dosage: UNK
     Route: 048
     Dates: start: 20110422
  14. MYSLEE [Concomitant]
     Dosage: UNK
     Route: 048
  15. DORNER [Concomitant]
     Indication: PULMONARY HYPERTENSION
     Dosage: UNK
     Route: 048
     Dates: start: 20100828
  16. BASEN [Concomitant]
     Dosage: UNK
     Route: 048

REACTIONS (3)
  - Respiratory failure [Fatal]
  - Gastrointestinal haemorrhage [Fatal]
  - Depression [Not Recovered/Not Resolved]
